FAERS Safety Report 17821652 (Version 2)
Quarter: 2020Q2

REPORT INFORMATION
  Report Type: Spontaneous
  Country: TW (occurrence: TW)
  Receive Date: 20200525
  Receipt Date: 20200525
  Transmission Date: 20200714
  Serious: Yes (Death)
  Sender: FDA-Public Use
  Company Number: TW-ABBVIE-20K-153-3418067-00

PATIENT
  Age: 38 Year
  Sex: Male

DRUGS (4)
  1. VIDAZA [Concomitant]
     Active Substance: AZACITIDINE
     Indication: PRODUCT USED FOR UNKNOWN INDICATION
     Dates: start: 20190423, end: 20190429
  2. VENETOCLAX. [Suspect]
     Active Substance: VENETOCLAX
     Indication: ACUTE ERYTHROID LEUKAEMIA
     Route: 048
     Dates: start: 20190417, end: 20190708
  3. VIDAZA [Concomitant]
     Active Substance: AZACITIDINE
     Dates: start: 20190521, end: 20190527
  4. VIDAZA [Concomitant]
     Active Substance: AZACITIDINE
     Dates: start: 20190618, end: 20190624

REACTIONS (2)
  - Multiple organ dysfunction syndrome [Fatal]
  - Pseudomonal sepsis [Fatal]

NARRATIVE: CASE EVENT DATE: 20190831
